FAERS Safety Report 15608394 (Version 1)
Quarter: 2018Q4

REPORT INFORMATION
  Report Type: Spontaneous
  Country: US (occurrence: US)
  Receive Date: 20181112
  Receipt Date: 20181112
  Transmission Date: 20190205
  Serious: Yes (Hospitalization, Other)
  Sender: FDA-Public Use
  Company Number: US-PFIZER INC-2017359475

PATIENT
  Age: 5 Year
  Sex: Female
  Weight: 21.9 kg

DRUGS (23)
  1. POLY VI SOL [Concomitant]
     Indication: SICKLE CELL DISEASE
     Dosage: 1 MG, 1X/DAY
  2. AMITRIPTYLINE [Concomitant]
     Active Substance: AMITRIPTYLINE
     Indication: SLEEP DISORDER
     Dosage: 6 MG, 1X/DAY
  3. GLYCOLAX [Concomitant]
     Active Substance: POLYETHYLENE GLYCOL 3350
     Indication: ABDOMINAL DISCOMFORT
     Dosage: UNK
  4. PROAIR HFA [Concomitant]
     Active Substance: ALBUTEROL SULFATE
     Indication: WHEEZING
     Dosage: 8.5 G, EVERY 4 HRS (8.5GRAMS ORAL INHALER-4 PUFFS EVERY 4 HOURS)
     Route: 055
     Dates: start: 201710
  5. CULTURELLE [Concomitant]
     Active Substance: LACTOBACILLUS RHAMNOSUS
     Indication: ABDOMINAL DISCOMFORT
     Dosage: UNK
  6. NEOCATE JUNIOR [Concomitant]
     Indication: SUPPLEMENTATION THERAPY
     Dosage: UNK UNK, DAILY (30CAL/ML ENTERAL FEEDING THROUGH G-TUBE-8 OUNCES OVERNIGHT)
     Dates: start: 201203
  7. MOTRIN [Concomitant]
     Active Substance: IBUPROFEN
     Indication: PAIN
     Dosage: 7.5 ML, AS NEEDED (EVERY 8 HOURS)
     Route: 048
  8. GENOTROPIN [Suspect]
     Active Substance: SOMATROPIN
     Indication: FAILURE TO THRIVE
     Dosage: 0.88 MG, UNK (6 DAYS A WEEK)
     Route: 058
     Dates: start: 201609, end: 20181028
  9. SYNTHROID [Concomitant]
     Active Substance: LEVOTHYROXINE SODIUM
     Indication: HYPOPITUITARISM
     Dosage: 0.035 MG, 1X/DAY
  10. HYDROCORTISONE. [Concomitant]
     Active Substance: HYDROCORTISONE
     Indication: HYPOPITUITARISM
  11. PENICILLIN VK [Concomitant]
     Active Substance: PENICILLIN V POTASSIUM
     Indication: PROPHYLAXIS
     Dosage: 250 MG, 2X/DAY (LIQUID THROUGH G-TUBE)
     Route: 048
  12. PROAIR HFA [Concomitant]
     Active Substance: ALBUTEROL SULFATE
     Indication: ACUTE CHEST SYNDROME
     Dosage: 6 DF, EVERY 4 HRS (6 PUFFS EVERY 4 HOURS) AS NEEDED
  13. GENOTROPIN [Suspect]
     Active Substance: SOMATROPIN
     Indication: GROWTH FAILURE
     Dosage: 0.6 MG, 1X/DAY (SIX DAYS A WEEK; NONE ON WEDNESDAY)
     Dates: start: 201609, end: 20170817
  14. GENOTROPIN [Suspect]
     Active Substance: SOMATROPIN
     Indication: GROWTH HORMONE DEFICIENCY
     Dosage: UNK
  15. HYDROCORTISONE. [Concomitant]
     Active Substance: HYDROCORTISONE
     Indication: THYROID DISORDER
     Dosage: 2.5 MG, 2X/DAY
     Dates: start: 201203
  16. GENOTROPIN [Suspect]
     Active Substance: SOMATROPIN
     Indication: HYPOPITUITARISM
     Dosage: UNK
     Dates: start: 201708, end: 20181028
  17. SYNTHROID [Concomitant]
     Active Substance: LEVOTHYROXINE SODIUM
     Indication: HYPOTHYROIDISM
     Dosage: 0.44 MG, DAILY
     Route: 048
     Dates: start: 201203
  18. MVI [ASCORBIC ACID;DEXPANTHENOL;ERGOCALCIFEROL;NICOTINAMIDE;PYRIDOXINE [Concomitant]
     Indication: VITAMIN SUPPLEMENTATION
     Dosage: UNK UNK, 1X/DAY
     Route: 048
     Dates: start: 2017
  19. FOLIC ACID. [Concomitant]
     Active Substance: FOLIC ACID
     Indication: SICKLE CELL DISEASE
     Dosage: 1 MG, 1X/DAY
  20. FOLIC ACID. [Concomitant]
     Active Substance: FOLIC ACID
     Indication: SICKLE CELL ANAEMIA
     Dosage: 1 MG, DAILY (DISSOLVED AND PUT THROUGH G-TUBE)
  21. MIRALAX [Concomitant]
     Active Substance: POLYETHYLENE GLYCOL 3350
     Indication: CONSTIPATION
     Dosage: UNK, 1X/DAY, 1/2 CAPFUL DAILY THROUGH G-TUBE
  22. MIRALAX [Concomitant]
     Active Substance: POLYETHYLENE GLYCOL 3350
     Dosage: UNK, DAILY (1/2 CAPFUL DAILY THROUGH G-TUBE)
  23. CLARITIN [Concomitant]
     Active Substance: LORATADINE
     Dosage: UNK

REACTIONS (4)
  - Product dose omission [Not Recovered/Not Resolved]
  - Pain [Recovering/Resolving]
  - Sickle cell anaemia with crisis [Recovered/Resolved]
  - Device issue [Unknown]

NARRATIVE: CASE EVENT DATE: 20170817
